FAERS Safety Report 11438078 (Version 2)
Quarter: 2015Q3

REPORT INFORMATION
  Report Type: Spontaneous
  Country: DK (occurrence: DK)
  Receive Date: 20150831
  Receipt Date: 20150901
  Transmission Date: 20151125
  Serious: Yes (Life-Threatening, Hospitalization)
  Sender: FDA-Public Use
  Company Number: DK-ABBVIE-15K-044-1453881-00

PATIENT
  Age: 38 Year
  Sex: Male

DRUGS (1)
  1. HUMIRA [Suspect]
     Active Substance: ADALIMUMAB
     Indication: ANKYLOSING SPONDYLITIS
     Route: 065

REACTIONS (3)
  - Intracardiac thrombus [Recovered/Resolved]
  - Cardiac failure [Recovered/Resolved]
  - Myocardial infarction [Recovered/Resolved]
